FAERS Safety Report 9391782 (Version 1)
Quarter: 2013Q3

REPORT INFORMATION
  Report Type: Report from Study
  Country: DE (occurrence: UY)
  Receive Date: 20130709
  Receipt Date: 20130709
  Transmission Date: 20140515
  Serious: Yes (Hospitalization)
  Sender: FDA-Public Use
  Company Number: DE-ACTELION-A-US2013-84753

PATIENT
  Age: 48 Year
  Sex: Female

DRUGS (3)
  1. VENTAVIS [Suspect]
     Indication: PULMONARY HYPERTENSION
     Dosage: UNK, 6/DAY
     Route: 055
     Dates: start: 20110819
  2. WARFARIN [Concomitant]
  3. ATORVASTATIN [Concomitant]

REACTIONS (7)
  - Hemiparesis [Recovered/Resolved]
  - Unevaluable event [Recovered/Resolved]
  - Grip strength decreased [Recovered/Resolved]
  - Muscular weakness [Recovered/Resolved]
  - Parotid gland enlargement [Recovered/Resolved]
  - VIIth nerve paralysis [Recovered/Resolved]
  - Conversion disorder [Recovered/Resolved]
